FAERS Safety Report 15843775 (Version 1)
Quarter: 2019Q1

REPORT INFORMATION
  Report Type: Spontaneous
  Country: US (occurrence: US)
  Receive Date: 20190118
  Receipt Date: 20190118
  Transmission Date: 20190417
  Serious: Yes (Life-Threatening)
  Sender: FDA-Public Use
  Company Number: None

PATIENT
  Age: 69 Year
  Sex: Female
  Weight: 63 kg

DRUGS (3)
  1. LOSARTAN HCTZ 100-12.5MG TAB [Suspect]
     Active Substance: HYDROCHLOROTHIAZIDE\LOSARTAN POTASSIUM
     Indication: HYPERTENSION
     Dosage: ?          QUANTITY:1 TABLET(S);?
     Route: 048
     Dates: start: 20180325, end: 20181011
  2. SIMISTATIN 40MG [Concomitant]
  3. AMIODIPINE-VALSARTAN 5-320 MG [Concomitant]

REACTIONS (4)
  - Motor dysfunction [None]
  - Cognitive disorder [None]
  - Seizure [None]
  - Unresponsive to stimuli [None]

NARRATIVE: CASE EVENT DATE: 20180918
